FAERS Safety Report 13905041 (Version 2)
Quarter: 2017Q3

REPORT INFORMATION
  Report Type: Report from Study
  Country: PL (occurrence: PL)
  Receive Date: 20170825
  Receipt Date: 20170921
  Transmission Date: 20171127
  Serious: Yes (Death, Life-Threatening, Other)
  Sender: FDA-Public Use
  Company Number: PL-SUN PHARMACEUTICAL INDUSTRIES LTD-2017R1-148381

PATIENT
  Age: 50 Year
  Sex: Female

DRUGS (2)
  1. PACLITAXEL. [Concomitant]
     Active Substance: PACLITAXEL
     Indication: OVARIAN EPITHELIAL CANCER
     Dosage: CYCLE LASTING 3 H WITH 3 WEEKS BREAK BETWEEN CHEMOTHERAPY CYCLES
     Route: 042
     Dates: start: 201303, end: 201408
  2. CARBOPLATIN. [Suspect]
     Active Substance: CARBOPLATIN
     Indication: OVARIAN EPITHELIAL CANCER
     Dosage: CYCLE LASTING 3 H WITH 3 WEEKS BREAK BETWEEN CHEMOTHERAPY CYCLES
     Route: 042
     Dates: start: 201303

REACTIONS (1)
  - Palmar-plantar erythrodysaesthesia syndrome [Unknown]
